FAERS Safety Report 18488510 (Version 2)
Quarter: 2021Q1

REPORT INFORMATION
  Report Type: Spontaneous
  Country: CA (occurrence: CA)
  Receive Date: 20201110
  Receipt Date: 20210307
  Transmission Date: 20210419
  Serious: Yes (Other)
  Sender: FDA-Public Use
  Company Number: CA-SAMSUNG BIOEPIS-SB-2020-33714

PATIENT
  Age: 63 Year
  Sex: Female

DRUGS (5)
  1. ACETAMINOPHEN. [Concomitant]
     Active Substance: ACETAMINOPHEN
     Dosage: UNKNOWN
     Route: 065
  2. INFLIXIMAB [Suspect]
     Active Substance: INFLIXIMAB
     Route: 042
  3. INFLIXIMAB [Suspect]
     Active Substance: INFLIXIMAB
     Indication: COLITIS ULCERATIVE
     Route: 042
  4. CALCIUM [Concomitant]
     Active Substance: CALCIUM
     Indication: PRODUCT USED FOR UNKNOWN INDICATION
     Dosage: UNKNOWN
     Route: 048
  5. ACETAMINOPHEN. [Concomitant]
     Active Substance: ACETAMINOPHEN
     Indication: PRODUCT USED FOR UNKNOWN INDICATION
     Dosage: UNKNOWN
     Route: 048

REACTIONS (26)
  - Blood pressure fluctuation [Not Recovered/Not Resolved]
  - White blood cell count increased [Not Recovered/Not Resolved]
  - Chest discomfort [Recovered/Resolved]
  - Condition aggravated [Not Recovered/Not Resolved]
  - Headache [Not Recovered/Not Resolved]
  - Insomnia [Not Recovered/Not Resolved]
  - Muscular weakness [Not Recovered/Not Resolved]
  - Pelvic pain [Not Recovered/Not Resolved]
  - Productive cough [Not Recovered/Not Resolved]
  - Depression [Not Recovered/Not Resolved]
  - Gastrointestinal disorder [Not Recovered/Not Resolved]
  - Muscle spasms [Not Recovered/Not Resolved]
  - Secretion discharge [Not Recovered/Not Resolved]
  - Nervousness [Not Recovered/Not Resolved]
  - Weight decreased [Not Recovered/Not Resolved]
  - Haemorrhoids [Not Recovered/Not Resolved]
  - Influenza [Not Recovered/Not Resolved]
  - Asthenia [Not Recovered/Not Resolved]
  - Disease recurrence [Recovered/Resolved]
  - Hot flush [Not Recovered/Not Resolved]
  - Drug ineffective [Not Recovered/Not Resolved]
  - Off label use [Not Recovered/Not Resolved]
  - Arthralgia [Not Recovered/Not Resolved]
  - Cough [Not Recovered/Not Resolved]
  - Nasopharyngitis [Not Recovered/Not Resolved]
  - Musculoskeletal pain [Not Recovered/Not Resolved]
